FAERS Safety Report 25974716 (Version 1)
Quarter: 2025Q4

REPORT INFORMATION
  Report Type: Spontaneous
  Country: EU (occurrence: EU)
  Receive Date: 20251029
  Receipt Date: 20251029
  Transmission Date: 20260119
  Serious: Yes (Hospitalization)
  Sender: CHEPLAPHARM
  Company Number: None

PATIENT
  Age: 68 Year
  Sex: Male

DRUGS (2)
  1. OLANZAPINE [Suspect]
     Active Substance: OLANZAPINE
     Route: 048
     Dates: start: 20161115, end: 20240501
  2. PAROXETINE [Suspect]
     Active Substance: PAROXETINE

REACTIONS (2)
  - Parkinsonism [Recovered/Resolved with Sequelae]
  - Psychiatric decompensation [Unknown]

NARRATIVE: CASE EVENT DATE: 20240501
